FAERS Safety Report 5590697-5 (Version None)
Quarter: 2008Q1

REPORT INFORMATION
  Report Type: 
  Country: None (occurrence: None)
  Receive Date: 20080114
  Receipt Date: 20080107
  Transmission Date: 20080703
  Serious: Yes (Other)
  Sender: FDA-Public Use
  Company Number: GB-PFIZER INC-2008001752

PATIENT
  Age: 38 Year
  Sex: Female

DRUGS (6)
  1. CHANTIX [Suspect]
     Dosage: TEXT:1 DOSE
     Route: 048
     Dates: start: 20071213, end: 20071214
  2. CHLORPROMAZINE [Concomitant]
     Route: 048
  3. CITALOPRAM [Concomitant]
     Route: 048
  4. OLANZAPINE [Concomitant]
     Route: 048
  5. OMEPRAZOLE [Concomitant]
     Route: 048
  6. VALPROATE SODIUM [Concomitant]
     Route: 048

REACTIONS (2)
  - DEPRESSED MOOD [None]
  - MOOD ALTERED [None]
